FAERS Safety Report 8327905-3 (Version None)
Quarter: 2012Q2

REPORT INFORMATION
  Report Type: 
  Country: None (occurrence: None)
  Receive Date: 20120502
  Receipt Date: 20120424
  Transmission Date: 20120825
  Serious: Yes (Other)
  Sender: FDA-Public Use
  Company Number: JP-BAYER-2012-035177

PATIENT
  Age: 64 Year
  Sex: Male
  Weight: 72 kg

DRUGS (2)
  1. NEXAVAR [Suspect]
     Indication: HEPATIC NEOPLASM MALIGNANT
     Dosage: DAILY DOSE 800 MG
     Route: 048
     Dates: start: 20120127, end: 20120322
  2. BARACLUDE [Concomitant]
     Dosage: DAILY DOSE 0.5 MG
     Route: 048
     Dates: start: 20110617

REACTIONS (1)
  - PORTAL VEIN THROMBOSIS [None]
